FAERS Safety Report 6357234-9 (Version None)
Quarter: 2009Q3

REPORT INFORMATION
  Report Type: 
  Country: None (occurrence: None)
  Receive Date: 20090915
  Receipt Date: 20090831
  Transmission Date: 20100115
  Serious: Yes (Disabling, Other)
  Sender: FDA-Public Use
  Company Number: US-PFIZER INC-2005067707

PATIENT
  Sex: Female
  Weight: 127 kg

DRUGS (8)
  1. CONJUGATED ESTROGEN/MEDROXYPROGESTERONE ACETA [Suspect]
     Dosage: UNK
     Route: 065
     Dates: start: 19981001, end: 20030101
  2. ATENOLOL [Concomitant]
     Indication: HYPERTENSION
     Dosage: UNK
     Dates: start: 19980101
  3. ATENOLOL [Concomitant]
     Indication: CARDIAC DISORDER
  4. GLIZID-M [Concomitant]
     Indication: DIABETES MELLITUS
     Dosage: UNK
     Dates: start: 19840101
  5. KETOPROFEN [Concomitant]
     Indication: ARTHRITIS
     Dosage: UNK
     Dates: start: 19970101
  6. TRAZODONE [Concomitant]
     Indication: DEPRESSION
     Dosage: UNK
     Dates: start: 19930101
  7. TRAZODONE [Concomitant]
     Indication: INSOMNIA
  8. CHLORTHALIDONE [Concomitant]
     Indication: DIURETIC THERAPY
     Dosage: UNK
     Dates: start: 19980101

REACTIONS (1)
  - BREAST CANCER FEMALE [None]
